FAERS Safety Report 6019515-8 (Version None)
Quarter: 2008Q4

REPORT INFORMATION
  Report Type: 
  Country: None (occurrence: None)
  Receive Date: 20081219
  Receipt Date: 20080715
  Transmission Date: 20090506
  Serious: Yes (Other)
  Sender: FDA-Public Use
  Company Number: APP200800648

PATIENT
  Age: 44 Year
  Sex: Female

DRUGS (5)
  1. DOXORUBICIN HYDROCHLORIDE [Suspect]
     Indication: BREAST CANCER
     Dosage: 40 MG, DAYS 1 AND 15 OF 28-DAY CYCLE, INTRAVENOUS : 16 MG, INTRAVENOUS
     Route: 042
     Dates: start: 20080605, end: 20080619
  2. DOXORUBICIN HYDROCHLORIDE [Suspect]
     Indication: CHEMOTHERAPY
     Dosage: 40 MG, DAYS 1 AND 15 OF 28-DAY CYCLE, INTRAVENOUS : 16 MG, INTRAVENOUS
     Route: 042
     Dates: start: 20080605, end: 20080619
  3. DOXORUBICIN HYDROCHLORIDE [Suspect]
     Indication: BREAST CANCER
     Dosage: 40 MG, DAYS 1 AND 15 OF 28-DAY CYCLE, INTRAVENOUS : 16 MG, INTRAVENOUS
     Route: 042
     Dates: start: 20080710
  4. DOXORUBICIN HYDROCHLORIDE [Suspect]
     Indication: CHEMOTHERAPY
     Dosage: 40 MG, DAYS 1 AND 15 OF 28-DAY CYCLE, INTRAVENOUS : 16 MG, INTRAVENOUS
     Route: 042
     Dates: start: 20080710
  5. VINBLASTINE SULFATE [Concomitant]

REACTIONS (1)
  - NEUTROPENIA [None]
